FAERS Safety Report 16376737 (Version 1)
Quarter: 2019Q2

REPORT INFORMATION
  Report Type: Spontaneous
  Country: US (occurrence: US)
  Receive Date: 20190531
  Receipt Date: 20190531
  Transmission Date: 20190711
  Serious: No
  Sender: FDA-Public Use
  Company Number: US-ABBVIE-19S-163-2794178-00

PATIENT
  Sex: Female

DRUGS (2)
  1. MARINOL [Suspect]
     Active Substance: DRONABINOL
     Indication: IMPAIRED GASTRIC EMPTYING
     Route: 065
     Dates: end: 201805
  2. MARINOL [Suspect]
     Active Substance: DRONABINOL
     Indication: CYCLIC VOMITING SYNDROME

REACTIONS (3)
  - Enamel anomaly [Not Recovered/Not Resolved]
  - Off label use [Unknown]
  - Malaise [Not Recovered/Not Resolved]
